FAERS Safety Report 6287094-6 (Version None)
Quarter: 2009Q3

REPORT INFORMATION
  Report Type: 
  Country: None (occurrence: None)
  Receive Date: 20090728
  Receipt Date: 20090727
  Transmission Date: 20100115
  Serious: Yes (Other)
  Sender: FDA-Public Use
  Company Number: DE-PFIZER INC-2009225639

PATIENT

DRUGS (9)
  1. TOVIAZ [Suspect]
     Indication: MICTURITION URGENCY
     Dosage: 4 MG, 1X/DAY
     Route: 048
     Dates: start: 20090610
  2. CARVEDILOL [Concomitant]
     Dosage: UNK
  3. CARMEN [Concomitant]
     Dosage: UNK
  4. BLOPRESS [Concomitant]
     Dosage: UNK
  5. TORASEMIDE [Concomitant]
     Dosage: UNK
  6. EZETROL [Concomitant]
     Dosage: UNK
  7. PANTOZOL [Concomitant]
     Dosage: UNK
  8. ALLOPURINOL [Concomitant]
     Dosage: UNK
  9. TIMOMANN [Concomitant]
     Dosage: UNK

REACTIONS (1)
  - HAEMATOCHEZIA [None]
